FAERS Safety Report 18378637 (Version 1)
Quarter: 2020Q4

REPORT INFORMATION
  Report Type: Spontaneous
  Country: JP (occurrence: JP)
  Receive Date: 20201013
  Receipt Date: 20201013
  Transmission Date: 20210114
  Serious: Yes (Hospitalization, Other)
  Sender: FDA-Public Use
  Company Number: JP-PFIZER INC-2020389806

PATIENT
  Age: 69 Year
  Sex: Male
  Weight: 57.1 kg

DRUGS (3)
  1. AMLODIPINE [Concomitant]
     Active Substance: AMLODIPINE BESYLATE
     Dosage: UNK
  2. SUTENT [Suspect]
     Active Substance: SUNITINIB MALATE
     Indication: GASTROINTESTINAL STROMAL TUMOUR
     Dosage: 12.5 MG, 3X/DAY
     Route: 048
     Dates: start: 20200811, end: 20200908
  3. FEBURIC [Concomitant]
     Active Substance: FEBUXOSTAT
     Dosage: UNK

REACTIONS (6)
  - Blood sodium decreased [Unknown]
  - Inappropriate antidiuretic hormone secretion [Recovered/Resolved]
  - Pericardial effusion [Unknown]
  - Dyspnoea [Unknown]
  - Pleural effusion [Unknown]
  - Blood osmolarity increased [Unknown]

NARRATIVE: CASE EVENT DATE: 2020
